FAERS Safety Report 10278885 (Version 1)
Quarter: 2014Q3

REPORT INFORMATION
  Report Type: Spontaneous
  Country: MX (occurrence: MX)
  Receive Date: 20140706
  Receipt Date: 20140706
  Transmission Date: 20150326
  Serious: Yes (Other)
  Sender: FDA-Public Use
  Company Number: PHHY2014MX082754

PATIENT
  Age: 40 Year
  Sex: Male

DRUGS (7)
  1. TEGRETOL [Suspect]
     Active Substance: CARBAMAZEPINE
     Indication: MENTAL DISORDER
     Dosage: 2 DF, DAILY
     Route: 048
  2. TEGRETOL [Suspect]
     Active Substance: CARBAMAZEPINE
     Indication: MENTAL DISORDER
     Dosage: 2 DF, QD (AT NIGHT)
  3. ZIPRASIDONE [Concomitant]
     Active Substance: ZIPRASIDONE
     Indication: POOR QUALITY SLEEP
     Dosage: 1 UKN, DAILY
  4. TEGRETOL [Suspect]
     Active Substance: CARBAMAZEPINE
     Indication: OFF LABEL USE
  5. CARBAMAZEPINE. [Suspect]
     Active Substance: CARBAMAZEPINE
     Indication: OFF LABEL USE
     Dosage: 2 DF, QD (2 TABLETS IN THE MORNING)
  6. CARBAMAZEPINE. [Suspect]
     Active Substance: CARBAMAZEPINE
     Indication: MENTAL DISORDER
     Dosage: 2 DF, BID (2 TABLETS IN THE MORNING AND 2 TABLETS AT NIGHT)
  7. TEGRETOL [Suspect]
     Active Substance: CARBAMAZEPINE
     Indication: OFF LABEL USE

REACTIONS (3)
  - Speech disorder [Not Recovered/Not Resolved]
  - Brain injury [Not Recovered/Not Resolved]
  - Disorientation [Unknown]
